FAERS Safety Report 6453452-X (Version None)
Quarter: 2009Q4

REPORT INFORMATION
  Report Type: 
  Country: None (occurrence: None)
  Receive Date: 20091124
  Receipt Date: 20091111
  Transmission Date: 20100525
  Serious: Yes (Death, Hospitalization)
  Sender: FDA-Public Use
  Company Number: IT-ROCHE-668262

PATIENT
  Sex: Male

DRUGS (4)
  1. XELODA [Suspect]
     Route: 048
     Dates: start: 20090905, end: 20090908
  2. FARMORUBICINA [Concomitant]
     Route: 042
     Dates: start: 20090905, end: 20090905
  3. CISPLATIN [Concomitant]
     Dosage: DRUG NAME REPORTED: CISPLATINO EBEWE.
     Route: 042
     Dates: start: 20090905, end: 20090905
  4. GEMZAR [Concomitant]
     Route: 042
     Dates: start: 20090905, end: 20090905

REACTIONS (3)
  - DIARRHOEA [None]
  - NEUTROPENIA [None]
  - STOMATITIS [None]
